FAERS Safety Report 21077610 (Version 2)
Quarter: 2022Q3

REPORT INFORMATION
  Report Type: Report from Study
  Country: AU (occurrence: None)
  Receive Date: 20220713
  Receipt Date: 20220720
  Transmission Date: 20221026
  Serious: Yes (Death)
  Sender: FDA-Public Use
  Company Number: AU-Eisai Medical Research-EC-2021-093492

PATIENT
  Age: 36 Year
  Sex: Male

DRUGS (3)
  1. LENVIMA [Suspect]
     Active Substance: LENVATINIB
     Indication: Osteosarcoma
     Route: 048
     Dates: start: 20210526, end: 20210923
  2. IFOSFAMIDE [Concomitant]
     Active Substance: IFOSFAMIDE
     Indication: Osteosarcoma
     Route: 042
     Dates: start: 20210421, end: 20210711
  3. ETOPOSIDE [Concomitant]
     Active Substance: ETOPOSIDE
     Indication: Osteosarcoma
     Route: 042
     Dates: start: 20210421, end: 20210711

REACTIONS (3)
  - Postoperative respiratory failure [Fatal]
  - Dyspnoea [Fatal]
  - Product use in unapproved indication [Fatal]

NARRATIVE: CASE EVENT DATE: 20211011
